FAERS Safety Report 16170450 (Version 2)
Quarter: 2019Q2

REPORT INFORMATION
  Report Type: Spontaneous
  Country: IT (occurrence: IT)
  Receive Date: 20190408
  Receipt Date: 20190530
  Transmission Date: 20190711
  Serious: Yes (Life-Threatening, Hospitalization)
  Sender: FDA-Public Use
  Company Number: IT-SA-2019SA091144

PATIENT
  Age: 75 Year
  Sex: Female

DRUGS (8)
  1. URBASON [METHYLPREDNISOLONE] [Concomitant]
     Active Substance: METHYLPREDNISOLONE
  2. CACIT [CALCIUM CARBONATE] [Concomitant]
     Active Substance: CALCIUM CARBONATE
     Dosage: UNK UNK, UNK
  3. ACETYLSALICYLIC ACID [Suspect]
     Active Substance: ASPIRIN
     Indication: THROMBOSIS PROPHYLAXIS
     Dosage: 1 DF, QD
     Route: 048
     Dates: start: 20180101, end: 20190220
  4. EUTIROX [Concomitant]
     Active Substance: LEVOTHYROXINE SODIUM
  5. ENOXAPARIN SODIUM. [Suspect]
     Active Substance: ENOXAPARIN SODIUM
     Indication: THROMBOSIS PROPHYLAXIS
     Dosage: 2 DF, QD
     Route: 058
     Dates: start: 20190220, end: 20190226
  6. DIBASE [Concomitant]
     Active Substance: CHOLECALCIFEROL
  7. TELMISARTAN/IDROCLOROTIAZIDE [Concomitant]
  8. AMLODIPINE [Concomitant]
     Active Substance: AMLODIPINE BESYLATE
     Dosage: UNK, UNK

REACTIONS (7)
  - Arterial haemorrhage [Recovered/Resolved]
  - Presyncope [Unknown]
  - Intra-abdominal haematoma [Recovered/Resolved]
  - Abdominal pain [Unknown]
  - Retroperitoneal haematoma [Unknown]
  - Hydronephrosis [Recovered/Resolved]
  - Asthenia [Unknown]

NARRATIVE: CASE EVENT DATE: 20190226
